FAERS Safety Report 5226496-3 (Version None)
Quarter: 2007Q1

REPORT INFORMATION
  Report Type: 
  Country: None (occurrence: None)
  Receive Date: 20061201
  Receipt Date: 20060920
  Transmission Date: 20070707
  Serious: No
  Sender: FDA-Public Use
  Company Number: US200609005003

PATIENT
  Age: 72 Year
  Sex: Female

DRUGS (7)
  1. CYMBALTA [Suspect]
     Indication: FIBROMYALGIA
     Dosage: SEE IMAGE
     Route: 048
     Dates: start: 20060201, end: 20060101
  2. CYMBALTA [Suspect]
     Indication: FIBROMYALGIA
     Dosage: SEE IMAGE
     Route: 048
     Dates: start: 20060101, end: 20060820
  3. CYMBALTA [Suspect]
     Indication: FIBROMYALGIA
     Dosage: SEE IMAGE
     Route: 048
     Dates: start: 20060821
  4. XANAX /USA/ (ALPRAZOLAM) [Concomitant]
  5. DIURETICS [Concomitant]
  6. IBUPROFEN [Concomitant]
  7. TYLENOL /USA/ (PARACETAMOL) [Concomitant]

REACTIONS (5)
  - ABNORMAL DREAMS [None]
  - CRYING [None]
  - DEPRESSED MOOD [None]
  - DRUG INEFFECTIVE FOR UNAPPROVED INDICATION [None]
  - INCREASED APPETITE [None]
